FAERS Safety Report 22629207 (Version 2)
Quarter: 2023Q4

REPORT INFORMATION
  Report Type: Report from Study
  Country: US (occurrence: US)
  Receive Date: 20230622
  Receipt Date: 20231213
  Transmission Date: 20240110
  Serious: Yes (Hospitalization)
  Sender: FDA-Public Use
  Company Number: US-OTSUKA-2023_016364

PATIENT
  Sex: Male

DRUGS (1)
  1. CEDAZURIDINE\DECITABINE [Suspect]
     Active Substance: CEDAZURIDINE\DECITABINE
     Indication: Myelodysplastic syndrome with multilineage dysplasia
     Dosage: 1 DF (35-100 MG), QD ON DAYS 1-5 OF EACH 28 DAY CYCLE
     Route: 048
     Dates: start: 20230524

REACTIONS (3)
  - White blood cell count abnormal [Recovered/Resolved]
  - Arthropod bite [Unknown]
  - Cellulitis [Unknown]
